FAERS Safety Report 5418949-X (Version None)
Quarter: 2007Q3

REPORT INFORMATION
  Report Type: 
  Country: None (occurrence: None)
  Receive Date: 20070817
  Receipt Date: 20070807
  Transmission Date: 20080115
  Serious: Yes (Death)
  Sender: FDA-Public Use
  Company Number: GB-PFIZER INC-2007066019

PATIENT
  Age: 42 Year
  Sex: Male

DRUGS (1)
  1. DOFETILIDE [Suspect]

REACTIONS (1)
  - RENAL FAILURE [None]
